FAERS Safety Report 9034747 (Version 1)
Quarter: 2013Q1

REPORT INFORMATION
  Report Type: Spontaneous
  Country: HR (occurrence: None)
  Receive Date: 20130111
  Receipt Date: 20130111
  Transmission Date: 20140127
  Serious: Yes (Hospitalization)
  Sender: FDA-Public Use
  Company Number: AG-2012-2142

PATIENT
  Age: 84 Year
  Sex: Female
  Weight: 73 kg

DRUGS (3)
  1. CHLORAMBUCIL [Suspect]
     Indication: CHRONIC LYMPHOCYTIC LEUKAEMIA
     Dosage: (DAY 1 AND 15)
     Route: 048
     Dates: start: 20120427
  2. RITUXIMAB [Suspect]
     Indication: CHRONIC LYMPHOCYTIC LEUKAEMIA
     Dosage: (1 IN 4 WEEKS)
     Route: 042
     Dates: start: 20120427, end: 20120726
  3. SODIUM CHLORIDE [Concomitant]

REACTIONS (3)
  - Renal failure acute [None]
  - Dehydration [None]
  - General physical health deterioration [None]
